FAERS Safety Report 5759034-7 (Version None)
Quarter: 2008Q2

REPORT INFORMATION
  Report Type: 
  Country: None (occurrence: None)
  Receive Date: 20080604
  Receipt Date: 20080602
  Transmission Date: 20081010
  Serious: Yes (Life-Threatening, Hospitalization)
  Sender: FDA-Public Use
  Company Number: ES-WYE-H04356208

PATIENT
  Sex: Male
  Weight: 87 kg

DRUGS (14)
  1. SIROLIMUS [Suspect]
     Indication: PROPHYLAXIS AGAINST TRANSPLANT REJECTION
     Route: 048
     Dates: start: 20080304, end: 20080311
  2. SIROLIMUS [Suspect]
     Route: 048
     Dates: start: 20080312, end: 20080317
  3. SIROLIMUS [Suspect]
     Route: 048
     Dates: start: 20080318, end: 20080319
  4. SIROLIMUS [Suspect]
     Route: 048
     Dates: start: 20080327, end: 20080411
  5. SIROLIMUS [Suspect]
     Route: 048
     Dates: start: 20080412, end: 20080418
  6. SIROLIMUS [Suspect]
     Route: 048
     Dates: start: 20080419, end: 20080526
  7. SIROLIMUS [Suspect]
     Route: 048
     Dates: start: 20080527, end: 20080530
  8. PREDNISONE TAB [Concomitant]
     Indication: IMMUNOSUPPRESSION
     Route: 065
     Dates: start: 20080304
  9. EZETROL [Concomitant]
     Indication: DYSLIPIDAEMIA
     Route: 065
     Dates: start: 20070606
  10. LOSARTAN POTASSIUM AND HYDROCHLOROTHIAZIDE [Concomitant]
     Indication: HYPERTENSION
     Dosage: 100MG/25MG ONCE DAILY
     Route: 065
     Dates: start: 20050506
  11. LESCOL [Concomitant]
     Indication: DYSLIPIDAEMIA
     Route: 065
     Dates: start: 20050506
  12. CELLCEPT [Concomitant]
     Indication: IMMUNOSUPPRESSION
     Route: 065
     Dates: start: 20080430, end: 20080530
  13. CELLCEPT [Concomitant]
     Route: 065
     Dates: start: 20080531
  14. OMEPRAZOLE [Concomitant]
     Indication: PROPHYLAXIS
     Route: 065
     Dates: start: 20021201

REACTIONS (1)
  - HEART TRANSPLANT REJECTION [None]
